FAERS Safety Report 14315224 (Version 1)
Quarter: 2017Q4

REPORT INFORMATION
  Report Type: Spontaneous
  Country: GB (occurrence: GB)
  Receive Date: 20171221
  Receipt Date: 20171221
  Transmission Date: 20180321
  Serious: Yes (Hospitalization)
  Sender: FDA-Public Use
  Company Number: GB-TEVA-2017-GB-833851

PATIENT
  Age: 82 Year
  Sex: Female

DRUGS (16)
  1. SANDO-K [Suspect]
     Active Substance: POTASSIUM BICARBONATE\POTASSIUM CHLORIDE
  2. MACROGOL 3350 [Concomitant]
     Active Substance: POLYETHYLENE GLYCOL 3350
     Route: 048
  3. BISOPROLOL [Concomitant]
     Active Substance: BISOPROLOL
     Dosage: ON MORNING
  4. WARFARIN [Suspect]
     Active Substance: WARFARIN
  5. LEVOTHYROXINE. [Concomitant]
     Active Substance: LEVOTHYROXINE
  6. NICORANDIL [Concomitant]
     Active Substance: NICORANDIL
  7. HYDROCORTISONE. [Concomitant]
     Active Substance: HYDROCORTISONE
     Dosage: APPLY EACH MORNING AND NIGHT AND AFTER A BOWEL MOVEMENT
  8. CINCHOCAINE [Concomitant]
     Dosage: APPLY EACH MORNING AND NIGHT AND AFTER A BOWEL MOVEMENT.
  9. BUDESONIDE. [Concomitant]
     Active Substance: BUDESONIDE
     Route: 055
  10. SALBUTAMOL [Concomitant]
     Active Substance: ALBUTEROL
     Route: 055
  11. ISOSORBIDE MONONITRATE. [Concomitant]
     Active Substance: ISOSORBIDE MONONITRATE
     Dosage: EVERY MORNING
  12. BRALTUS [Concomitant]
     Route: 055
  13. BUMETANIDE. [Concomitant]
     Active Substance: BUMETANIDE
     Dosage: 2MG MORNING AND 1MG LUNCHTIME.
  14. DICLOFENAC [Concomitant]
     Active Substance: DICLOFENAC
     Dosage: 3 TIMES A DAY
  15. HYPROMELLOSE [Concomitant]
     Active Substance: HYPROMELLOSES
     Dosage: AFFECTED EYE - PATIENT USES IN BOTH EYES.
     Route: 050
  16. HYDRALAZINE [Concomitant]
     Active Substance: HYDRALAZINE HYDROCHLORIDE

REACTIONS (2)
  - Constipation [Recovered/Resolved]
  - Rectal haemorrhage [Recovered/Resolved]

NARRATIVE: CASE EVENT DATE: 20170714
